FAERS Safety Report 5502299-7 (Version None)
Quarter: 2007Q4

REPORT INFORMATION
  Report Type: 
  Country: None (occurrence: None)
  Receive Date: 20071029
  Receipt Date: 20071017
  Transmission Date: 20080405
  Serious: Yes (Hospitalization)
  Sender: FDA-Public Use
  Company Number: 238237K07USA

PATIENT
  Age: 74 Year
  Sex: Female
  Weight: 68.0396 kg

DRUGS (4)
  1. REBIF [Suspect]
     Indication: MULTIPLE SCLEROSIS
     Dosage: 44 MCG, 3 IN 1 WEEKS, SUBCUTANEOUS
     Route: 058
     Dates: start: 20020610
  2. ANTIDEPRESSANT (ANTIDEPRESSANTS) [Concomitant]
  3. DITROPAN (OXYBUTYNIN /00538901/) [Concomitant]
  4. ANTIBIOTIC (ANTIBIOTICS) [Concomitant]

REACTIONS (1)
  - CEREBROVASCULAR ACCIDENT [None]
